FAERS Safety Report 18532269 (Version 1)
Quarter: 2020Q4

REPORT INFORMATION
  Report Type: Spontaneous
  Country: BR (occurrence: BR)
  Receive Date: 20201123
  Receipt Date: 20201123
  Transmission Date: 20210114
  Serious: Yes (Congenital Anomaly, Other)
  Sender: FDA-Public Use
  Company Number: BR-LUPIN PHARMACEUTICALS INC.-2020-09484

PATIENT

DRUGS (3)
  1. POTASSIUM [Suspect]
     Active Substance: POTASSIUM
     Indication: WERNICKE^S ENCEPHALOPATHY
     Dosage: UNK
     Route: 064
  2. THIAMINE. [Suspect]
     Active Substance: THIAMINE
     Dosage: 100 MILLIGRAM
     Route: 064
  3. THIAMINE. [Suspect]
     Active Substance: THIAMINE
     Indication: WERNICKE^S ENCEPHALOPATHY
     Dosage: 500 MILLIGRAM, TID (AS LOADING DOSE) EVERY 8 HOUR
     Route: 064

REACTIONS (4)
  - Dandy-Walker syndrome [Unknown]
  - Foetal growth restriction [Unknown]
  - Cerebral ventricle dilatation [Unknown]
  - Foetal exposure during pregnancy [Unknown]
